FAERS Safety Report 20167036 (Version 3)
Quarter: 2022Q1

REPORT INFORMATION
  Report Type: Spontaneous
  Country: PT (occurrence: PT)
  Receive Date: 20211209
  Receipt Date: 20220328
  Transmission Date: 20220424
  Serious: Yes (Hospitalization, Other)
  Sender: FDA-Public Use
  Company Number: PT-MYLANLABS-2021M1089712

PATIENT
  Age: 54 Year
  Sex: Female

DRUGS (4)
  1. CARBIDOPA\LEVODOPA [Suspect]
     Active Substance: CARBIDOPA\LEVODOPA
     Indication: Parkinsonism
     Dosage: 1 DOSAGE FORM, TID
  2. CARBIDOPA\LEVODOPA [Suspect]
     Active Substance: CARBIDOPA\LEVODOPA
     Dosage: 25/100 MG, TID
  3. OLANZAPINE [Suspect]
     Active Substance: OLANZAPINE
     Indication: Product used for unknown indication
     Dosage: UNK
  4. QUETIAPINE [Suspect]
     Active Substance: QUETIAPINE
     Indication: Product used for unknown indication
     Dosage: UNK

REACTIONS (9)
  - Substance-induced psychotic disorder [Recovering/Resolving]
  - Psychomotor hyperactivity [Unknown]
  - Decreased appetite [Unknown]
  - Aggression [Unknown]
  - Hallucination, auditory [Unknown]
  - Delusional disorder, erotomanic type [Unknown]
  - Insomnia [Unknown]
  - Psychotic disorder [Unknown]
  - Drug ineffective [Unknown]
